FAERS Safety Report 4466172-8 (Version None)
Quarter: 2004Q3

REPORT INFORMATION
  Report Type: 
  Country: None (occurrence: None)
  Receive Date: 20040928
  Receipt Date: 20040928
  Transmission Date: 20050211
  Serious: Yes (Other)
  Sender: FDA-Public Use
  Company Number: None

PATIENT
  Age: 61 Year
  Sex: Female
  Weight: 87 kg

DRUGS (1)
  1. DEFINITY [Suspect]
     Indication: DIAGNOSTIC PROCEDURE
     Dosage: 10 MCL/KG   IV ONCE
     Route: 042
     Dates: start: 20040716

REACTIONS (3)
  - HEADACHE [None]
  - MUSCLE SPASMS [None]
  - PAIN [None]
